FAERS Safety Report 8824971 (Version 1)
Quarter: 2012Q4

REPORT INFORMATION
  Report Type: 
  Country: US (occurrence: US)
  Receive Date: 20121004
  Receipt Date: 20121004
  Transmission Date: 20130627
  Serious: No
  Sender: FDA-Public Use
  Company Number: US-PFIZER INC-2012243934

PATIENT
  Age: 82 Year
  Sex: Male
  Weight: 68.03 kg

DRUGS (2)
  1. METRONIDAZOLE [Suspect]
     Indication: PAIN
     Dosage: UNK
  2. METRONIDAZOLE [Suspect]
     Indication: ABSCESS

REACTIONS (5)
  - Drug intolerance [Unknown]
  - Vomiting [Unknown]
  - Diarrhoea [Unknown]
  - Nausea [Unknown]
  - Malaise [Unknown]
